FAERS Safety Report 11634294 (Version 3)
Quarter: 2015Q4

REPORT INFORMATION
  Report Type: Spontaneous
  Country: US (occurrence: None)
  Receive Date: 20151015
  Receipt Date: 20151208
  Transmission Date: 20160304
  Serious: Yes (Death, Other)
  Sender: FDA-Public Use
  Company Number: US-MDT-ADR-2015-01964

PATIENT
  Age: 79 Year
  Sex: Female

DRUGS (2)
  1. LIORESAL [Suspect]
     Active Substance: BACLOFEN
  2. BACLOFEN INTRATHECAL [Suspect]
     Active Substance: BACLOFEN
     Indication: MUSCLE SPASTICITY
     Dosage: 300.1 MCG/DAY

REACTIONS (4)
  - Aphasia [None]
  - Bone neoplasm [None]
  - Cerebrovascular accident [None]
  - Hemiparesis [None]
